FAERS Safety Report 9395896 (Version 1)
Quarter: 2013Q3

REPORT INFORMATION
  Report Type: Spontaneous
  Country: IT (occurrence: IT)
  Receive Date: 20130711
  Receipt Date: 20130711
  Transmission Date: 20140515
  Serious: Yes (Hospitalization)
  Sender: FDA-Public Use
  Company Number: IT-GLAXOSMITHKLINE-B0906822A

PATIENT
  Age: 32 Year
  Sex: Female

DRUGS (2)
  1. ALIFLUS [Suspect]
     Indication: ASTHMA
     Route: 065
     Dates: start: 20130521, end: 20130521
  2. FOSTER [Concomitant]
     Indication: ASTHMA

REACTIONS (3)
  - Eye oedema [Recovering/Resolving]
  - Erythema [Recovering/Resolving]
  - Pruritus generalised [Recovering/Resolving]
